FAERS Safety Report 8779379 (Version 1)
Quarter: 2012Q4

REPORT INFORMATION
  Report Type: 
  Country: FR (occurrence: FR)
  Receive Date: 20120911
  Receipt Date: 20120911
  Transmission Date: 20130627
  Serious: Yes (Other)
  Sender: FDA-Public Use
  Company Number: FR-RANBAXY-2012RR-59902

PATIENT
  Age: 38 Year
  Sex: Male
  Weight: 66 kg

DRUGS (2)
  1. PARACETAMOL [Suspect]
     Indication: TOOTHACHE
     Dosage: supposed ingested dose 137  mg/kg/day
     Route: 048
  2. BUPRENORPHINE [Concomitant]
     Indication: PRODUCT USED FOR UNKNOWN INDICATION
     Route: 065

REACTIONS (1)
  - Accidental overdose [Recovered/Resolved]
